FAERS Safety Report 5925649-6 (Version None)
Quarter: 2008Q3

REPORT INFORMATION
  Report Type: 
  Country: None (occurrence: None)
  Receive Date: 20080919
  Receipt Date: 20080619
  Transmission Date: 20090109
  Serious: No
  Sender: FDA-Public Use
  Company Number: US-WYE-H04645308

PATIENT
  Age: 49 Year
  Sex: Female
  Weight: 54.48 kg

DRUGS (5)
  1. PRISTIQ [Suspect]
     Indication: ANXIETY
     Dosage: 50 MG (FREQUENCY UNSPECIFIED)
     Dates: start: 20080601, end: 20080619
  2. PRISTIQ [Suspect]
     Indication: DEPRESSION
     Dosage: 50 MG (FREQUENCY UNSPECIFIED)
     Dates: start: 20080601, end: 20080619
  3. ADDERALL 10 [Concomitant]
  4. BUPROPION HCL [Concomitant]
  5. CLONAZEPAM [Concomitant]

REACTIONS (1)
  - FATIGUE [None]
